FAERS Safety Report 12743672 (Version 2)
Quarter: 2016Q4

REPORT INFORMATION
  Report Type: Spontaneous
  Country: US (occurrence: US)
  Receive Date: 20160914
  Receipt Date: 20161130
  Transmission Date: 20170207
  Serious: Yes (Other)
  Sender: FDA-Public Use
  Company Number: US-BAYER-2016-175092

PATIENT
  Age: 46 Year
  Sex: Female
  Weight: 99.77 kg

DRUGS (6)
  1. LISINOPRIL. [Concomitant]
     Active Substance: LISINOPRIL
     Indication: HYPERTENSION
     Dosage: UNK
     Dates: start: 2013
  2. ZANTAC [Concomitant]
     Active Substance: RANITIDINE HYDROCHLORIDE
     Indication: GASTROOESOPHAGEAL REFLUX DISEASE
     Dosage: 300 MG, QD
  3. LISINOPRIL. [Concomitant]
     Active Substance: LISINOPRIL
     Indication: BLOOD PRESSURE MANAGEMENT
     Dosage: 20 MG, QD
  4. MIRALAX [Concomitant]
     Active Substance: POLYETHYLENE GLYCOL 3350
     Indication: CONSTIPATION
     Dosage: 17 G, UNK
  5. TYLENOL EXTRA STRENGTH [Concomitant]
     Active Substance: ACETAMINOPHEN
     Indication: PAIN
     Dosage: UNK
  6. CIPRO [Suspect]
     Active Substance: CIPROFLOXACIN HYDROCHLORIDE
     Dosage: 250 MG, UNK
     Dates: start: 200211

REACTIONS (16)
  - Balance disorder [None]
  - Fall [None]
  - Visual impairment [None]
  - Hypoaesthesia [None]
  - Paraesthesia [None]
  - Muscle spasms [None]
  - Gait disturbance [None]
  - Injury [None]
  - Neuropathy peripheral [None]
  - Pain [None]
  - Anxiety [None]
  - Burning sensation [None]
  - Asthenia [None]
  - Headache [None]
  - Discomfort [None]
  - Pain in extremity [None]

NARRATIVE: CASE EVENT DATE: 200301
